FAERS Safety Report 10224373 (Version 1)
Quarter: 2014Q2

REPORT INFORMATION
  Report Type: Spontaneous
  Country: US (occurrence: US)
  Receive Date: 20140609
  Receipt Date: 20140609
  Transmission Date: 20141212
  Serious: No
  Sender: FDA-Public Use
  Company Number: US-PFIZER INC-2014157345

PATIENT
  Age: 42 Year
  Sex: Female
  Weight: 68.5 kg

DRUGS (2)
  1. LYRICA [Suspect]
     Indication: FIBROMYALGIA
     Dosage: 150 MG, 2X/DAY
     Dates: start: 2001
  2. AMITRIPTYLINE [Concomitant]
     Indication: HEADACHE
     Dosage: 10 MG, DAILY

REACTIONS (1)
  - Weight increased [Not Recovered/Not Resolved]
